FAERS Safety Report 8557963-2 (Version None)
Quarter: 2012Q3

REPORT INFORMATION
  Report Type: 
  Country: None (occurrence: None)
  Receive Date: 20120801
  Receipt Date: 20120723
  Transmission Date: 20120928
  Serious: Yes (Other)
  Sender: FDA-Public Use
  Company Number: US-ELI_LILLY_AND_COMPANY-US201107002037

PATIENT
  Sex: Female

DRUGS (5)
  1. FORTEO [Suspect]
     Dosage: 20 UG, QD
  2. FORTEO [Suspect]
     Indication: OSTEOPOROSIS
     Dosage: 20 UG, QD
     Route: 065
     Dates: start: 20110706
  3. LASIX [Concomitant]
  4. FORTEO [Suspect]
     Dosage: 20 UG, QD
  5. FORTEO [Suspect]
     Dosage: 20 UG, QD

REACTIONS (27)
  - INJECTION SITE PRURITUS [None]
  - ANXIETY [None]
  - ARTHRITIS [None]
  - DIZZINESS [None]
  - OSTEOARTHRITIS [None]
  - MOBILITY DECREASED [None]
  - SYNCOPE [None]
  - FATIGUE [None]
  - SOMNOLENCE [None]
  - PSORIASIS [None]
  - ORTHOSTATIC HYPERTENSION [None]
  - LOSS OF CONSCIOUSNESS [None]
  - INJECTION SITE EXTRAVASATION [None]
  - BONE DENSITY ABNORMAL [None]
  - INJECTION SITE ERYTHEMA [None]
  - STRESS [None]
  - PULSE ABNORMAL [None]
  - BLOOD PRESSURE FLUCTUATION [None]
  - ASTHENIA [None]
  - BLOOD MAGNESIUM DECREASED [None]
  - PAIN [None]
  - BLOOD POTASSIUM DECREASED [None]
  - BACK DISORDER [None]
  - ADRENAL DISORDER [None]
  - GAIT DISTURBANCE [None]
  - DRUG DOSE OMISSION [None]
  - INCORRECT DOSE ADMINISTERED [None]
